FAERS Safety Report 6020213-5 (Version None)
Quarter: 2008Q4

REPORT INFORMATION
  Report Type: 
  Country: None (occurrence: None)
  Receive Date: 20081223
  Receipt Date: 20081223
  Transmission Date: 20090506
  Serious: Yes (Hospitalization)
  Sender: FDA-Public Use
  Company Number: None

PATIENT
  Age: 35 Year
  Sex: Male
  Weight: 191 kg

DRUGS (1)
  1. FRAGMIN [Suspect]
     Indication: THROMBOSIS PROPHYLAXIS
     Dosage: 5000 UNITS DAILY SQ
     Route: 058
     Dates: start: 20080924, end: 20081006

REACTIONS (3)
  - HEPARIN-INDUCED THROMBOCYTOPENIA [None]
  - ILL-DEFINED DISORDER [None]
  - MULTI-ORGAN FAILURE [None]
